FAERS Safety Report 5666995-3 (Version None)
Quarter: 2008Q1

REPORT INFORMATION
  Report Type: 
  Country: None (occurrence: None)
  Receive Date: 20080315
  Receipt Date: 20080107
  Transmission Date: 20080703
  Serious: No
  Sender: FDA-Public Use
  Company Number: US-ABBOTT-08P-163-0432840-00

PATIENT
  Sex: Female
  Weight: 79.45 kg

DRUGS (4)
  1. HUMIRA [Suspect]
     Indication: CROHN'S DISEASE
     Dosage: STARTED DOSE
     Route: 058
     Dates: start: 20080103
  2. HUMIRA [Suspect]
     Route: 058
  3. HUMIRA [Suspect]
  4. RAMICADE [Concomitant]
     Indication: CROHN'S DISEASE
     Route: 048
     Dates: start: 20050701, end: 20080101

REACTIONS (1)
  - INJECTION SITE PAIN [None]
